FAERS Safety Report 15319745 (Version 1)
Quarter: 2018Q3

REPORT INFORMATION
  Report Type: Spontaneous
  Country: NL (occurrence: NL)
  Receive Date: 20180827
  Receipt Date: 20180827
  Transmission Date: 20181010
  Serious: Yes (Hospitalization)
  Sender: FDA-Public Use
  Company Number: NL-009507513-1808NLD008680

PATIENT
  Age: 46 Year
  Sex: Female
  Weight: 61 kg

DRUGS (9)
  1. KEYTRUDA [Suspect]
     Active Substance: PEMBROLIZUMAB
     Indication: LUNG CANCER METASTATIC
     Dosage: 1 DF, UNK
     Route: 042
     Dates: start: 20170704, end: 20170724
  2. COTRIMOXAZOL FORTE [Concomitant]
     Active Substance: SULFAMETHOXAZOLE\TRIMETHOPRIM
     Dosage: 1 TIMES DAILY 1
     Route: 048
     Dates: start: 20170817
  3. OXYCODONE [Concomitant]
     Active Substance: OXYCODONE
     Dosage: IF NECESSARY 6 TIMES DAILY 5 MG ; AS NECESSARY
     Route: 048
     Dates: start: 20170707
  4. FOLIUMZUUR [Concomitant]
     Active Substance: FOLIC ACID
     Dosage: 1 TIMES DAILY 1
     Route: 048
     Dates: start: 20170703
  5. ACETAMINOPHEN. [Concomitant]
     Active Substance: ACETAMINOPHEN
     Dosage: DOSE 4000 MG/ 4 TIMES DAILY 1000MG
     Route: 048
     Dates: start: 20170703
  6. POLYETHYLENE GLYCOL 4000 [Concomitant]
     Active Substance: POLYETHYLENE GLYCOL 4000
     Dosage: IF NECESSARY 2 TIMES DAILY 1; CYCLICAL
     Route: 048
     Dates: start: 20170703
  7. CALCIUM CARBONATE (+) CHOLECALCIFEROL [Concomitant]
     Active Substance: CALCIUM CARBONATE\CHOLECALCIFEROL
     Dosage: 1,25G/400 INTERNATIONAL UNITS (500MG CALCIUM)/ 1 TIMES DAILY 1
     Route: 048
     Dates: start: 20170817
  8. OXYCODONE [Concomitant]
     Active Substance: OXYCODONE
     Dosage: 1 TIMES DAILY 10MG
     Route: 048
     Dates: start: 20170707
  9. ETHINYL ESTRADIOL (+) LEVONORGESTREL [Concomitant]
     Active Substance: ETHINYL ESTRADIOL\LEVONORGESTREL
     Dosage: ACCORDING TO PRESCRIPTION
     Route: 048
     Dates: start: 20170703

REACTIONS (2)
  - Cholestasis [Recovering/Resolving]
  - Hepatitis [Recovering/Resolving]

NARRATIVE: CASE EVENT DATE: 20170805
